FAERS Safety Report 6299848-0 (Version None)
Quarter: 2009Q3

REPORT INFORMATION
  Report Type: 
  Country: None (occurrence: None)
  Receive Date: 20090804
  Receipt Date: 20090720
  Transmission Date: 20100115
  Serious: Yes (Other)
  Sender: FDA-Public Use
  Company Number: 1-19034488

PATIENT
  Age: 36 Year
  Sex: Female
  Weight: 54.4316 kg

DRUGS (1)
  1. MUPIROCIN [Suspect]
     Indication: STAPHYLOCOCCAL INFECTION
     Dosage: 2X DAILY X 7 DAYS/MO, INTRANASAL
     Route: 045
     Dates: start: 20090519, end: 20090629

REACTIONS (8)
  - ASTHENIA [None]
  - CARDIAC FLUTTER [None]
  - FEELING ABNORMAL [None]
  - HYPOGLYCAEMIA [None]
  - MUSCULAR WEAKNESS [None]
  - PAIN IN EXTREMITY [None]
  - PALPITATIONS [None]
  - SINUS TACHYCARDIA [None]
